FAERS Safety Report 6750028-1 (Version None)
Quarter: 2010Q2

REPORT INFORMATION
  Report Type: 
  Country: None (occurrence: None)
  Receive Date: 20100527
  Receipt Date: 20100527
  Transmission Date: 20101027
  Serious: Yes (Disabling, Other)
  Sender: FDA-Public Use
  Company Number: None

PATIENT
  Sex: Female
  Weight: 63.6 kg

DRUGS (2)
  1. BONIVA [Suspect]
     Indication: OSTEOPOROSIS
     Dosage: 1 IV EVERY 3 MONTHS IV INFUSION
     Route: 042
     Dates: start: 20090501
  2. BONIVA [Suspect]
     Indication: OSTEOPOROSIS
     Dosage: 1 IV EVERY 3 MONTHS IV INFUSION
     Route: 042
     Dates: start: 20090801

REACTIONS (10)
  - ACTIVITIES OF DAILY LIVING IMPAIRED [None]
  - ARTHRALGIA [None]
  - BACK PAIN [None]
  - BONE PAIN [None]
  - GAIT DISTURBANCE [None]
  - GASTRIC DISORDER [None]
  - MOVEMENT DISORDER [None]
  - MUSCULOSKELETAL PAIN [None]
  - PRODUCT QUALITY ISSUE [None]
  - TOOTHACHE [None]
